FAERS Safety Report 10191754 (Version 1)
Quarter: 2014Q2

REPORT INFORMATION
  Report Type: Spontaneous
  Country: FR (occurrence: FR)
  Receive Date: 20140523
  Receipt Date: 20140523
  Transmission Date: 20141212
  Serious: Yes (Death)
  Sender: FDA-Public Use
  Company Number: FR-BAYER-2014-074953

PATIENT
  Age: 65 Year
  Sex: Male

DRUGS (1)
  1. STIVARGA [Suspect]
     Dosage: UNK
     Dates: start: 20140505

REACTIONS (2)
  - Diarrhoea [Fatal]
  - Vomiting [Fatal]
